FAERS Safety Report 24829613 (Version 1)
Quarter: 2025Q1

REPORT INFORMATION
  Report Type: Spontaneous
  Country: US (occurrence: US)
  Receive Date: 20250110
  Receipt Date: 20250110
  Transmission Date: 20250409
  Serious: Yes (Hospitalization, Other)
  Sender: GRIFOLS
  Company Number: US-IGSA-BIG0032313

PATIENT
  Age: 80 Year
  Sex: Male

DRUGS (1)
  1. GAMUNEX-C [Suspect]
     Active Substance: HUMAN IMMUNOGLOBULIN G
     Indication: Chronic inflammatory demyelinating polyradiculoneuropathy
     Dosage: 45 GRAM, Q.M.T.
     Route: 042
     Dates: start: 20190313

REACTIONS (5)
  - Decreased appetite [Unknown]
  - Malaise [Unknown]
  - Fall [Unknown]
  - Head injury [Unknown]
  - Cerebral haemorrhage [Unknown]

NARRATIVE: CASE EVENT DATE: 20241218
